FAERS Safety Report 4633606-5 (Version None)
Quarter: 2005Q2

REPORT INFORMATION
  Report Type: 
  Country: None (occurrence: None)
  Receive Date: 20050412
  Receipt Date: 20050412
  Transmission Date: 20051028
  Serious: Yes (Hospitalization)
  Sender: FDA-Public Use
  Company Number: None

PATIENT
  Age: 58 Year
  Sex: Male
  Weight: 66.2 kg

DRUGS (5)
  1. ACETAMINOPHEN [Suspect]
  2. TIMOLOL MALEATE [Concomitant]
  3. RANITIDINE [Concomitant]
  4. LATANOPROST OPHTH [Concomitant]
  5. RANITIDINE [Concomitant]

REACTIONS (2)
  - NASAL CONGESTION [None]
  - SWELLING FACE [None]
